FAERS Safety Report 4538371-8 (Version None)
Quarter: 2004Q4

REPORT INFORMATION
  Report Type: 
  Country: None (occurrence: None)
  Receive Date: 20041221
  Receipt Date: 20041203
  Transmission Date: 20050328
  Serious: Yes (Life-Threatening)
  Sender: FDA-Public Use
  Company Number: DSA_24887_2004

PATIENT
  Age: 75 Year
  Sex: Female

DRUGS (5)
  1. TEVETEN [Suspect]
     Indication: HYPERTENSION
     Dosage: 600 MG Q DAY PO
     Route: 048
     Dates: start: 20031219
  2. CYRESS [Concomitant]
  3. LESCOL [Concomitant]
  4. DIURECTICS [Concomitant]
  5. SELOKEEN [Concomitant]

REACTIONS (4)
  - DIZZINESS [None]
  - HYPERTENSIVE CRISIS [None]
  - NERVOUSNESS [None]
  - REFUSAL OF TREATMENT BY PATIENT [None]
